FAERS Safety Report 5873915-5 (Version None)
Quarter: 2008Q3

REPORT INFORMATION
  Report Type: 
  Country: None (occurrence: None)
  Receive Date: 20080905
  Receipt Date: 20080905
  Transmission Date: 20090109
  Serious: No
  Sender: FDA-Public Use
  Company Number: None

PATIENT
  Age: 3 Year
  Sex: Female
  Weight: 14 kg

DRUGS (1)
  1. METHIMAZOLE [Suspect]
     Indication: BASEDOW'S DISEASE
     Dosage: 7.5 MG DAILY PO
     Route: 048

REACTIONS (3)
  - ARTHRALGIA [None]
  - DRUG TOXICITY [None]
  - PYREXIA [None]
